FAERS Safety Report 7992646-9 (Version None)
Quarter: 2011Q4

REPORT INFORMATION
  Report Type: 
  Country: None (occurrence: None)
  Receive Date: 20111219
  Receipt Date: 20101115
  Transmission Date: 20120403
  Serious: No
  Sender: FDA-Public Use
  Company Number: US-ASTRAZENECA-2010SE43984

PATIENT
  Sex: Female

DRUGS (2)
  1. CRESTOR [Suspect]
     Route: 048
     Dates: start: 20100101
  2. ARIMIDEX [Suspect]
     Route: 048

REACTIONS (8)
  - ANDROGENETIC ALOPECIA [None]
  - MALAISE [None]
  - DRUG DOSE OMISSION [None]
  - THROAT IRRITATION [None]
  - RASH [None]
  - ABDOMINAL PAIN UPPER [None]
  - BLOOD CHOLESTEROL INCREASED [None]
  - COUGH [None]
